FAERS Safety Report 12166807 (Version 1)
Quarter: 2016Q1

REPORT INFORMATION
  Report Type: Spontaneous
  Country: US (occurrence: US)
  Receive Date: 20160310
  Receipt Date: 20160310
  Transmission Date: 20160526
  Serious: Yes (Other)
  Sender: FDA-Public Use
  Company Number: US-ZYDUS-010399

PATIENT
  Age: 73 Year
  Sex: Female

DRUGS (2)
  1. AZATHIOPRINE. [Suspect]
     Active Substance: AZATHIOPRINE
     Indication: IMMUNOSUPPRESSANT DRUG THERAPY
     Route: 065
  2. PREDNISONE/PREDNISONE ACETATE [Suspect]
     Active Substance: PREDNISONE
     Indication: IMMUNOSUPPRESSANT DRUG THERAPY
     Route: 065

REACTIONS (8)
  - Pericardial effusion [Unknown]
  - Cerebral infarction [Unknown]
  - Haematoma [Unknown]
  - Coronary artery occlusion [Unknown]
  - Bundle branch block [Unknown]
  - Aortic rupture [Unknown]
  - Hypotension [Unknown]
  - Electrocardiogram ST segment elevation [Unknown]
